FAERS Safety Report 9744158 (Version 2)
Quarter: 2014Q1

REPORT INFORMATION
  Report Type: Report from Study
  Country: US (occurrence: US)
  Receive Date: 20131210
  Receipt Date: 20140115
  Transmission Date: 20141002
  Serious: Yes (Death, Life-Threatening, Hospitalization, Other)
  Sender: FDA-Public Use
  Company Number: US-MPIJNJ-2013MPI001239

PATIENT
  Age: 56 Year
  Sex: Female
  Weight: 78.7 kg

DRUGS (5)
  1. VELCADE [Suspect]
     Indication: PLASMA CELL MYELOMA
     Dosage: 2.4 MG, DAILY X 1 DAY
     Dates: start: 20131107, end: 20131110
  2. MELPHALAN [Suspect]
     Indication: PLASMA CELL MYELOMA
     Dosage: 130 MG, DAILY X 2 DAYS
     Dates: start: 20131107, end: 20131110
  3. FLUDARABINE [Suspect]
     Indication: PLASMA CELL MYELOMA
     Dosage: 130 MG, DAILY X 3 DAYS
     Dates: start: 20131107, end: 20131110
  4. CORTICOSTEROIDS [Concomitant]
     Dosage: UNK
     Dates: start: 20031121
  5. FENTANYL [Concomitant]
     Indication: PAIN
     Dosage: UNK
     Route: 042
     Dates: start: 20031121

REACTIONS (4)
  - Multi-organ failure [Fatal]
  - Stomatitis [Fatal]
  - Hypotension [Fatal]
  - Atrial fibrillation [Recovered/Resolved]
